FAERS Safety Report 25688354 (Version 2)
Quarter: 2025Q3

REPORT INFORMATION
  Report Type: Report from Study
  Country: US (occurrence: US)
  Receive Date: 20250818
  Receipt Date: 20250822
  Transmission Date: 20251021
  Serious: Yes (Death, Other)
  Sender: ACADIA PHARMACEUTICALS
  Company Number: US-ACADIA PHARMACEUTICALS INC.-ACA-2025-PIM-009201

PATIENT
  Sex: Male

DRUGS (14)
  1. NUPLAZID [Suspect]
     Active Substance: PIMAVANSERIN TARTRATE
     Indication: Parkinson^s disease psychosis
     Dosage: 34 MILLIGRAM, QD
     Route: 048
     Dates: start: 202503
  2. LAMOTRIGINE [Concomitant]
     Active Substance: LAMOTRIGINE
  3. QUETIAPINE [Concomitant]
     Active Substance: QUETIAPINE
  4. OLANZAPINE [Concomitant]
     Active Substance: OLANZAPINE
  5. CARBIDOPA [Concomitant]
     Active Substance: CARBIDOPA
  6. ALLOPURINOL [Concomitant]
     Active Substance: ALLOPURINOL
  7. NIFEDIPINE [Concomitant]
     Active Substance: NIFEDIPINE
  8. PRAVASTATIN [Concomitant]
     Active Substance: PRAVASTATIN
  9. PROLIA [Concomitant]
     Active Substance: DENOSUMAB
  10. TAMSULOSIN [Concomitant]
     Active Substance: TAMSULOSIN
  11. FINASTERIDE [Concomitant]
     Active Substance: FINASTERIDE
  12. CALCITRIOL [Concomitant]
     Active Substance: CALCITRIOL
  13. REVLIMID [Concomitant]
     Active Substance: LENALIDOMIDE
  14. Respimat [Concomitant]

REACTIONS (1)
  - Plasma cell myeloma [Fatal]
